FAERS Safety Report 7544132-8 (Version None)
Quarter: 2011Q2

REPORT INFORMATION
  Report Type: 
  Country: None (occurrence: None)
  Receive Date: 20110613
  Receipt Date: 20060327
  Transmission Date: 20111010
  Serious: Yes (Other)
  Sender: FDA-Public Use
  Company Number: PHHO2006CL03433

PATIENT
  Age: 68 Year
  Sex: Male

DRUGS (6)
  1. AMLODIPINE [Concomitant]
  2. NEFERSIL [Concomitant]
  3. DICLOFENAC SODIUM [Concomitant]
  4. REFLEXAN [Concomitant]
  5. DOLONASE [Concomitant]
  6. VALSARTAN  AND HYDROCHLOROTHIAZIDE [Suspect]
     Dosage: 160 + 12.5
     Route: 048
     Dates: start: 20050701

REACTIONS (1)
  - PROSTATE CANCER [None]
